FAERS Safety Report 5723369-4 (Version None)
Quarter: 2008Q2

REPORT INFORMATION
  Report Type: 
  Country: None (occurrence: None)
  Receive Date: 20080430
  Receipt Date: 20080423
  Transmission Date: 20081010
  Serious: Yes (Hospitalization)
  Sender: FDA-Public Use
  Company Number: FR-BAXTER-2008BH004258

PATIENT
  Age: 21 Month
  Sex: Male

DRUGS (1)
  1. GAMMAGARD LIQUID [Suspect]
     Indication: IMMUNODEFICIENCY
     Route: 042
     Dates: start: 20080411, end: 20080411

REACTIONS (4)
  - HYPERTENSION [None]
  - HYPERTHERMIA [None]
  - LIVEDO RETICULARIS [None]
  - TACHYCARDIA [None]
